FAERS Safety Report 12574240 (Version 1)
Quarter: 2016Q3

REPORT INFORMATION
  Report Type: Spontaneous
  Country: US (occurrence: None)
  Receive Date: 20160719
  Receipt Date: 20160719
  Transmission Date: 20161109
  Serious: Yes (Hospitalization)
  Sender: FDA-Public Use
  Company Number: None

PATIENT
  Age: 57 Year
  Sex: Male
  Weight: 115.9 kg

DRUGS (2)
  1. WARFARIN [Suspect]
     Active Substance: WARFARIN
     Indication: PULMONARY EMBOLISM
     Dates: start: 20151209, end: 20160405
  2. WARFARIN [Suspect]
     Active Substance: WARFARIN
     Indication: DEEP VEIN THROMBOSIS
     Dates: start: 20151209, end: 20160405

REACTIONS (3)
  - Upper gastrointestinal haemorrhage [None]
  - Haemoptysis [None]
  - Mallory-Weiss syndrome [None]

NARRATIVE: CASE EVENT DATE: 20160405
